FAERS Safety Report 9481873 (Version 2)
Quarter: 2013Q3

REPORT INFORMATION
  Report Type: Spontaneous
  Country: CA (occurrence: CA)
  Receive Date: 20130828
  Receipt Date: 20130828
  Transmission Date: 20140515
  Serious: Yes (Hospitalization)
  Sender: FDA-Public Use
  Company Number: CA-AMGEN-KDL233497

PATIENT
  Age: 63 Year
  Sex: Female
  Weight: 77.2 kg

DRUGS (1)
  1. ENBREL [Suspect]
     Indication: RHEUMATOID ARTHRITIS
     Dosage: 50 MG, QWK
     Route: 058
     Dates: start: 20070106, end: 200907

REACTIONS (8)
  - Food poisoning [Recovering/Resolving]
  - Decreased immune responsiveness [Unknown]
  - Hyperhidrosis [Unknown]
  - Chills [Unknown]
  - Feeling of body temperature change [Unknown]
  - Pneumonia [Unknown]
  - Headache [Unknown]
  - Pyrexia [Unknown]
